FAERS Safety Report 5008794-1 (Version None)
Quarter: 2006Q2

REPORT INFORMATION
  Report Type: 
  Country: None (occurrence: None)
  Receive Date: 20060519
  Receipt Date: 20060511
  Transmission Date: 20061013
  Serious: Yes (Other)
  Sender: FDA-Public Use
  Company Number: 200611304BCC

PATIENT
  Sex: Female
  Weight: 58.0604 kg

DRUGS (2)
  1. ALEVE [Suspect]
     Indication: PROCEDURAL PAIN
     Dosage: SEE IMAGE
     Route: 048
  2. ALEVE [Suspect]
     Indication: TRIGEMINAL NEURALGIA
     Dosage: SEE IMAGE
     Route: 048

REACTIONS (8)
  - ABDOMINAL PAIN UPPER [None]
  - INCONTINENCE [None]
  - INCORRECT DOSE ADMINISTERED [None]
  - MUSCLE SPASMS [None]
  - OEDEMA PERIPHERAL [None]
  - URINARY RETENTION [None]
  - VISION BLURRED [None]
  - VISUAL ACUITY REDUCED [None]
